FAERS Safety Report 9983064 (Version 1)
Quarter: 2014Q1

REPORT INFORMATION
  Report Type: Report from Study
  Country: US (occurrence: US)
  Receive Date: 20140307
  Receipt Date: 20140307
  Transmission Date: 20141002
  Serious: No
  Sender: FDA-Public Use
  Company Number: US-ABBVIE-13P-163-1177124-00

PATIENT
  Age: 28 Year
  Sex: Female
  Weight: 65.83 kg

DRUGS (4)
  1. HUMIRA [Suspect]
     Indication: COLITIS ULCERATIVE
     Dates: start: 20130807
  2. IMURAN [Concomitant]
     Indication: COLITIS ULCERATIVE
  3. PREDNISONE [Concomitant]
     Indication: COLITIS ULCERATIVE
  4. SYNTHROID [Concomitant]
     Indication: THYROID DISORDER

REACTIONS (2)
  - Injection site bruising [Recovering/Resolving]
  - Injection site swelling [Unknown]
